FAERS Safety Report 9037239 (Version 1)
Quarter: 2013Q1

REPORT INFORMATION
  Report Type: Report from Study
  Country: US (occurrence: US)
  Receive Date: 20130129
  Receipt Date: 20130129
  Transmission Date: 20140127
  Serious: No
  Sender: FDA-Public Use
  Company Number: US-ABBOTT-12P-163-0895734-00

PATIENT
  Age: 51 Year
  Sex: Female

DRUGS (9)
  1. HUMIRA 40 MG/0.8 ML PEN [Suspect]
     Indication: RHEUMATOID ARTHRITIS
     Dates: start: 201005
  2. HUMIRA 40 MG/0.8 ML PEN [Suspect]
     Dates: end: 201109
  3. ARAVA [Concomitant]
     Indication: RHEUMATOID ARTHRITIS
  4. RELASIN [Concomitant]
     Indication: RHEUMATOID ARTHRITIS
  5. PLAQUENIL [Concomitant]
     Indication: RHEUMATOID ARTHRITIS
  6. NEXIUM [Concomitant]
     Indication: GASTROOESOPHAGEAL REFLUX DISEASE
  7. TRAMADOL [Concomitant]
     Indication: RHEUMATOID ARTHRITIS
  8. PREMPRO [Concomitant]
     Indication: HORMONE REPLACEMENT THERAPY
     Dosage: .625/2.5MG DAILY
  9. SALAGEN [Concomitant]
     Indication: DRY MOUTH

REACTIONS (2)
  - Joint swelling [Not Recovered/Not Resolved]
  - Arthralgia [Not Recovered/Not Resolved]
